FAERS Safety Report 19768248 (Version 1)
Quarter: 2021Q3

REPORT INFORMATION
  Report Type: Spontaneous
  Country: US (occurrence: US)
  Receive Date: 20210831
  Receipt Date: 20210831
  Transmission Date: 20211014
  Serious: No
  Sender: FDA-Public Use
  Company Number: US-SA-2021SA285857

PATIENT
  Age: 9 Year
  Sex: Male

DRUGS (4)
  1. TRIAMCINOLON [TRIAMCINOLONE] [Concomitant]
     Active Substance: TRIAMCINOLONE
  2. XYZAL [Concomitant]
     Active Substance: LEVOCETIRIZINE DIHYDROCHLORIDE
  3. DUPIXENT [Suspect]
     Active Substance: DUPILUMAB
     Indication: DERMATITIS ATOPIC
     Dosage: 200 MG/1.14ML, QOW
     Route: 058
     Dates: start: 20200923
  4. CHLORINE [Suspect]
     Active Substance: CHLORINE

REACTIONS (3)
  - Dermatitis atopic [Not Recovered/Not Resolved]
  - Sunburn [Not Recovered/Not Resolved]
  - Product use issue [Unknown]

NARRATIVE: CASE EVENT DATE: 20200923
